FAERS Safety Report 6797846-1 (Version None)
Quarter: 2010Q2

REPORT INFORMATION
  Report Type: 
  Country: None (occurrence: None)
  Receive Date: 20100623
  Receipt Date: 20100607
  Transmission Date: 20101027
  Serious: Yes (Other)
  Sender: FDA-Public Use
  Company Number: ACO_01058_2010

PATIENT
  Sex: Male

DRUGS (1)
  1. AMPYRA [Suspect]
     Indication: DRUG USE FOR UNKNOWN INDICATION
     Dosage: (DF)
     Dates: start: 20100521

REACTIONS (3)
  - BEDRIDDEN [None]
  - DRUG EFFECT DECREASED [None]
  - RESTLESSNESS [None]
